FAERS Safety Report 5503670-X (Version None)
Quarter: 2007Q4

REPORT INFORMATION
  Report Type: 
  Country: None (occurrence: None)
  Receive Date: 20071101
  Receipt Date: 20071022
  Transmission Date: 20080405
  Serious: Yes (Other)
  Sender: FDA-Public Use
  Company Number: PHBS2007JP17764

PATIENT
  Age: 36 Year

DRUGS (1)
  1. TEGRETOL [Suspect]
     Route: 048
     Dates: end: 20050314

REACTIONS (6)
  - BRADYCARDIA [None]
  - C-REACTIVE PROTEIN INCREASED [None]
  - DIZZINESS [None]
  - DYSARTHRIA [None]
  - HYPOTHERMIA [None]
  - LIVER DISORDER [None]
